FAERS Safety Report 26033665 (Version 1)
Quarter: 2025Q4

REPORT INFORMATION
  Report Type: Report from Study
  Country: US (occurrence: US)
  Receive Date: 20251112
  Receipt Date: 20251112
  Transmission Date: 20260117
  Serious: Yes (Hospitalization)
  Sender: ALEXION PHARMACEUTICALS
  Company Number: US-AstraZeneca-CH-00985669A

PATIENT
  Sex: Female

DRUGS (20)
  1. BENRALIZUMAB [Suspect]
     Active Substance: BENRALIZUMAB
     Indication: Asthma
     Dosage: 30 MILLIGRAM PER MILLILITRE, Q8W
  2. BENRALIZUMAB [Suspect]
     Active Substance: BENRALIZUMAB
  3. ALBUTEROL [Concomitant]
     Active Substance: ALBUTEROL
     Route: 065
  4. EPIPEN [Concomitant]
     Active Substance: EPINEPHRINE
     Route: 065
  5. FLONASE [Concomitant]
     Active Substance: FLUTICASONE PROPIONATE
     Route: 065
  6. FLUTICASONE [Concomitant]
     Active Substance: FLUTICASONE
     Route: 065
  7. KENALOG [Concomitant]
     Active Substance: TRIAMCINOLONE ACETONIDE
     Route: 065
  8. LEVAQUIN [Concomitant]
     Active Substance: LEVOFLOXACIN
     Route: 065
  9. MONTELUKAST [Concomitant]
     Active Substance: MONTELUKAST
     Route: 065
  10. OMEPRAZOLE [Concomitant]
     Active Substance: OMEPRAZOLE
     Route: 065
  11. POTASSIUM [Concomitant]
     Active Substance: POTASSIUM
     Route: 065
  12. PRAVASTATIN [Concomitant]
     Active Substance: PRAVASTATIN
     Route: 065
  13. PREDNISONE [Concomitant]
     Active Substance: PREDNISONE
     Route: 065
  14. ADVAIR HFA [Concomitant]
     Active Substance: FLUTICASONE PROPIONATE\SALMETEROL XINAFOATE
     Route: 065
  15. GABAPENTIN [Concomitant]
     Active Substance: GABAPENTIN
     Route: 065
  16. LEXAPRO [Concomitant]
     Active Substance: ESCITALOPRAM OXALATE
     Route: 065
  17. HYDROCHLOROTHIAZIDE\LOSARTAN [Concomitant]
     Active Substance: HYDROCHLOROTHIAZIDE\LOSARTAN
     Route: 065
  18. MELOXICAM [Concomitant]
     Active Substance: MELOXICAM
     Route: 065
  19. VITAMIN B12 [Concomitant]
     Active Substance: CYANOCOBALAMIN
     Route: 065
  20. VITAMIN D3 [Concomitant]
     Active Substance: CHOLECALCIFEROL
     Route: 065

REACTIONS (5)
  - Condition aggravated [Unknown]
  - Dyspnoea [Unknown]
  - Infection [Unknown]
  - Pyrexia [Unknown]
  - Asthma [Unknown]
